FAERS Safety Report 6575754-9 (Version None)
Quarter: 2010Q1

REPORT INFORMATION
  Report Type: 
  Country: None (occurrence: None)
  Receive Date: 20100209
  Receipt Date: 20100202
  Transmission Date: 20100710
  Serious: Yes (Death, Life-Threatening, Hospitalization)
  Sender: FDA-Public Use
  Company Number: TW-PFIZER INC-2008090116

PATIENT
  Age: 77 Year
  Sex: Male
  Weight: 63 kg

DRUGS (21)
  1. BLINDED *NO SUBJECT DRUG [Suspect]
     Indication: COLORECTAL CANCER
     Dosage: 37.5 MG, 1X/DAY
     Route: 048
     Dates: start: 20080820, end: 20081021
  2. BLINDED *PLACEBO [Suspect]
     Indication: COLORECTAL CANCER
     Dosage: 37.5 MG, 1X/DAY
     Route: 048
     Dates: start: 20080820, end: 20081021
  3. BLINDED SUNITINIB MALATE [Suspect]
     Indication: COLORECTAL CANCER
     Dosage: 37.5 MG, 1X/DAY
     Route: 048
     Dates: start: 20080820, end: 20081021
  4. IRINOTECAN HCL [Suspect]
     Indication: COLORECTAL CANCER
     Dosage: 300 MG, EVERY 2 WEEKS
     Route: 042
     Dates: start: 20080821, end: 20081016
  5. FLUOROURACIL [Suspect]
     Indication: COLORECTAL CANCER
     Dosage: 700 MG, LOADING, EVERY 2 WEEKS
     Route: 042
     Dates: start: 20080821, end: 20081016
  6. FLUOROURACIL [Suspect]
     Dosage: 4000 MG, INFUSION
     Route: 042
     Dates: start: 20080821, end: 20081018
  7. RESCUVOLIN [Suspect]
     Indication: COLORECTAL CANCER
     Dosage: 700 MG, EVERY 2 WEEKS
     Route: 042
     Dates: start: 20080821, end: 20081016
  8. AUGMENTIN [Concomitant]
     Dosage: 1 G, 2X/DAY
     Dates: start: 20081011, end: 20081018
  9. NEXIUM [Concomitant]
     Dosage: 40 MG, 1X/DAY
     Dates: start: 20081011, end: 20081023
  10. CHLORPROMAZINE [Concomitant]
     Dosage: 50 MG, 2X/DAY
     Dates: start: 20081011, end: 20081023
  11. AMOXICILLIN [Concomitant]
     Dosage: 250 MG, 3X/DAY
     Dates: start: 20081017, end: 20081023
  12. METRONIDAZOLE [Concomitant]
     Dosage: 250 MG, 2X/DAY
     Dates: start: 20081017, end: 20081023
  13. ALDACTONE [Concomitant]
     Dosage: 25 MG, 1X/DAY
     Dates: start: 20081017, end: 20081023
  14. TAMSULOSIN [Concomitant]
     Dosage: 0.2 MG, 1X/DAY
     Dates: start: 20081017, end: 20081023
  15. BETHANECHOL [Concomitant]
     Dosage: 25 MG, 2X/DAY
     Dates: start: 20081017, end: 20081023
  16. ACETAMINOPHEN [Concomitant]
     Dosage: 500 MG, 2X/DAY
     Dates: start: 20081017, end: 20081023
  17. GLUCOBAY [Concomitant]
     Dosage: 50 MG, 3X/DAY
     Dates: start: 20081020, end: 20081023
  18. DIAMICRON [Concomitant]
     Dosage: 30 MG, 1X/DAY
     Dates: start: 20081020, end: 20081023
  19. TIAPROFENIC ACID [Concomitant]
     Dosage: 200 MG, 2X/DAY
     Dates: start: 20081022, end: 20081023
  20. TRAMADOL [Concomitant]
     Dosage: 100 MG, 2X/DAY
     Dates: start: 20081022, end: 20081023
  21. ALUMINIUM MAGNESIUM SILICATE [Concomitant]
     Dosage: 3 G, 1X/DAY
     Dates: start: 20081017, end: 20081023

REACTIONS (5)
  - DIABETIC KETOACIDOSIS [None]
  - LEUKOPENIA [None]
  - NEUTROPENIA [None]
  - SEPTIC SHOCK [None]
  - THROMBOCYTOPENIA [None]
